FAERS Safety Report 6708904-1 (Version None)
Quarter: 2010Q2

REPORT INFORMATION
  Report Type: 
  Country: None (occurrence: None)
  Receive Date: 20100428
  Receipt Date: 20100421
  Transmission Date: 20101027
  Serious: Yes (Death)
  Sender: FDA-Public Use
  Company Number: CRC-10-065

PATIENT
  Age: 42 Year
  Sex: Male
  Weight: 80.7403 kg

DRUGS (1)
  1. ACETAMINOPHEN AND HYDROCODONE BITARTRATE [Suspect]

REACTIONS (10)
  - AORTIC ARTERIOSCLEROSIS [None]
  - CARDIOMEGALY [None]
  - COMPLETED SUICIDE [None]
  - CORONARY ARTERY OCCLUSION [None]
  - CORONARY ARTERY STENOSIS [None]
  - DRUG TOXICITY [None]
  - INTRACARDIAC THROMBUS [None]
  - PULMONARY CONGESTION [None]
  - PULMONARY OEDEMA [None]
  - THROMBOSIS [None]
